FAERS Safety Report 7401507-5 (Version None)
Quarter: 2011Q2

REPORT INFORMATION
  Report Type: 
  Country: None (occurrence: None)
  Receive Date: 20110408
  Receipt Date: 20110331
  Transmission Date: 20111010
  Serious: Yes (Other)
  Sender: FDA-Public Use
  Company Number: US-BIOGENIDEC-2010BI013388

PATIENT
  Sex: Female

DRUGS (2)
  1. TOPAMAX [Concomitant]
     Indication: CONVULSION PROPHYLAXIS
  2. TYSABRI [Suspect]
     Indication: MULTIPLE SCLEROSIS
     Route: 042
     Dates: start: 20091211

REACTIONS (7)
  - PETIT MAL EPILEPSY [None]
  - NEURALGIA [None]
  - CONVULSION [None]
  - FATIGUE [None]
  - SINUSITIS [None]
  - EAR INFECTION [None]
  - LOSS OF CONSCIOUSNESS [None]
